FAERS Safety Report 9362005 (Version 1)
Quarter: 2013Q2

REPORT INFORMATION
  Report Type: Spontaneous
  Country: US (occurrence: US)
  Receive Date: 20130621
  Receipt Date: 20130621
  Transmission Date: 20140414
  Serious: No
  Sender: FDA-Public Use
  Company Number: US-009507513-1306USA009072

PATIENT
  Age: 60 Year
  Sex: Male

DRUGS (2)
  1. CLARINEX-D-12 [Suspect]
     Indication: ASTHMA
     Dosage: 2.5 MG, FREQUENCY UNSPECIFIED
     Route: 048
  2. CLARINEX-D-12 [Suspect]
     Indication: SEASONAL ALLERGY

REACTIONS (6)
  - Lacrimation increased [Unknown]
  - Rhinorrhoea [Unknown]
  - Cough [Unknown]
  - Adverse event [Unknown]
  - Agitation [Unknown]
  - Drug dose omission [Unknown]
